FAERS Safety Report 7634913-4 (Version None)
Quarter: 2011Q3

REPORT INFORMATION
  Report Type: 
  Country: None (occurrence: None)
  Receive Date: 20110726
  Receipt Date: 20110718
  Transmission Date: 20111222
  Serious: Yes (Other)
  Sender: FDA-Public Use
  Company Number: US-ASTRAZENECA-2011SE43009

PATIENT
  Age: 14084 Day
  Sex: Male

DRUGS (4)
  1. SEROQUEL [Suspect]
     Route: 048
  2. CIMETIDINE [Concomitant]
     Dates: start: 20080227
  3. METFORMIN HCL [Concomitant]
     Dates: start: 20080227
  4. OXCARBAZEPINE [Concomitant]
     Dates: start: 20080320

REACTIONS (4)
  - HYPOMAGNESAEMIA [None]
  - BREAST CANCER [None]
  - MALIGNANT HYPERTENSION [None]
  - HYPERCALCAEMIA [None]
